FAERS Safety Report 12340602 (Version 4)
Quarter: 2016Q4

REPORT INFORMATION
  Report Type: Spontaneous
  Country: US (occurrence: US)
  Receive Date: 20160506
  Receipt Date: 20161024
  Transmission Date: 20170207
  Serious: Yes (Death, Life-Threatening, Hospitalization, Other)
  Sender: FDA-Public Use
  Company Number: US-JNJFOC-20141108434

PATIENT
  Age: 73 Year
  Sex: Male

DRUGS (25)
  1. IMBRUVICA [Suspect]
     Active Substance: IBRUTINIB
     Indication: CHRONIC LYMPHOCYTIC LEUKAEMIA
     Route: 048
     Dates: start: 20140627, end: 20141014
  2. IPRATROPIUM [Concomitant]
     Active Substance: IPRATROPIUM
  3. CITALOPRAM [Concomitant]
     Active Substance: CITALOPRAM HYDROBROMIDE
     Indication: DEPRESSION
     Route: 048
  4. FLUDROCORTISONE [Concomitant]
     Active Substance: FLUDROCORTISONE
     Route: 048
  5. IMBRUVICA [Suspect]
     Active Substance: IBRUTINIB
     Indication: CHRONIC LYMPHOCYTIC LEUKAEMIA
     Route: 048
     Dates: start: 20141208
  6. POTASSIUM CHLORIDE. [Concomitant]
     Active Substance: POTASSIUM CHLORIDE
  7. CHOLECALCIFEROL [Concomitant]
     Active Substance: CHOLECALCIFEROL
  8. LANSOPRAZOLE. [Concomitant]
     Active Substance: LANSOPRAZOLE
     Route: 048
  9. TRAMADOL. [Concomitant]
     Active Substance: TRAMADOL
     Dosage: 50MG/100MG,QID,PRN.
  10. CEFEPIME [Concomitant]
     Active Substance: CEFEPIME HYDROCHLORIDE
  11. VITAMIN D [Concomitant]
     Active Substance: CHOLECALCIFEROL
     Dosage: 2000 UNITS/DAY
  12. IMBRUVICA [Suspect]
     Active Substance: IBRUTINIB
     Indication: CHRONIC LYMPHOCYTIC LEUKAEMIA
     Route: 048
     Dates: start: 20141115, end: 20141117
  13. ALBUTEROL. [Concomitant]
     Active Substance: ALBUTEROL
  14. GUAIFENESIN. [Concomitant]
     Active Substance: GUAIFENESIN
  15. DIGOXINE [Concomitant]
     Active Substance: DIGOXIN
  16. LACTOBACILLUS ACIDOPHILUS [Concomitant]
     Active Substance: LACTOBACILLUS ACIDOPHILUS
  17. ROBITUSSIN (GUAIFENESIN) [Concomitant]
     Active Substance: GUAIFENESIN
  18. PHENERGAN [Concomitant]
     Active Substance: PROMETHAZINE HYDROCHLORIDE
     Route: 048
  19. KLOR-CON [Concomitant]
     Active Substance: POTASSIUM CHLORIDE
  20. ZOLPIDEM [Concomitant]
     Active Substance: ZOLPIDEM\ZOLPIDEM TARTRATE
     Route: 048
  21. PROTONIX [Concomitant]
     Active Substance: PANTOPRAZOLE SODIUM
  22. IMMUNOGLOBULIN HUMAN NORMAL [Concomitant]
     Active Substance: HUMAN IMMUNOGLOBULIN G
     Indication: HYPOGLOBULINAEMIA
  23. CODEIN [Concomitant]
     Active Substance: CODEINE
  24. PREDNISONE. [Concomitant]
     Active Substance: PREDNISONE
     Indication: RHEUMATOID ARTHRITIS
     Route: 048
  25. MUPIROCIN. [Concomitant]
     Active Substance: MUPIROCIN

REACTIONS (7)
  - Injury [Unknown]
  - Ascites [Unknown]
  - Mastoid effusion [Unknown]
  - Aneurysm [Unknown]
  - White blood cell count abnormal [Unknown]
  - General physical health deterioration [Fatal]
  - Mucormycosis [Recovering/Resolving]

NARRATIVE: CASE EVENT DATE: 2014
